FAERS Safety Report 6885716-X (Version None)
Quarter: 2010Q3

REPORT INFORMATION
  Report Type: 
  Country: None (occurrence: None)
  Receive Date: 20100729
  Receipt Date: 20080327
  Transmission Date: 20110219
  Serious: No
  Sender: FDA-Public Use
  Company Number: US-PFIZER INC-2008027728

PATIENT
  Sex: Female

DRUGS (11)
  1. QUINAPRIL HCL [Suspect]
     Indication: BLOOD PRESSURE
  2. LOZOL [Suspect]
  3. SYNTHROID [Concomitant]
  4. VITAMIN B [Concomitant]
  5. ACETYLSALICYLIC ACID SRT [Concomitant]
  6. DOCUSATE [Concomitant]
     Dates: end: 20080326
  7. VYTORIN [Concomitant]
  8. CICLOPIROX [Concomitant]
  9. NAPROSYN [Concomitant]
  10. STARLIX [Concomitant]
  11. QUINAPRIL [Concomitant]
     Indication: BLOOD PRESSURE

REACTIONS (3)
  - ASTHENIA [None]
  - BLOOD PRESSURE INADEQUATELY CONTROLLED [None]
  - FATIGUE [None]
